FAERS Safety Report 5720039-3 (Version None)
Quarter: 2008Q2

REPORT INFORMATION
  Report Type: 
  Country: None (occurrence: None)
  Receive Date: 20080428
  Receipt Date: 20080416
  Transmission Date: 20081010
  Serious: Yes (Hospitalization)
  Sender: FDA-Public Use
  Company Number: US-AVENTIS-200813502GDDC

PATIENT
  Age: 74 Year
  Sex: Male
  Weight: 64 kg

DRUGS (4)
  1. TAXOTERE [Suspect]
     Indication: PROSTATE CANCER
     Route: 042
     Dates: start: 20080211, end: 20080303
  2. CODE UNBROKEN [Suspect]
     Indication: PROSTATE CANCER
     Dosage: DOSE: UNK
     Route: 048
     Dates: start: 20080211, end: 20080308
  3. DEXAMETHASONE [Concomitant]
     Dates: end: 20080211
  4. PREDNISONE [Concomitant]
     Dates: end: 20080308

REACTIONS (6)
  - GRANULOCYTES ABNORMAL [None]
  - HYPOCALCAEMIA [None]
  - HYPOPHOSPHATAEMIA [None]
  - MUCOSAL INFLAMMATION [None]
  - NEUTROPHIL COUNT ABNORMAL [None]
  - STOMATITIS [None]
